FAERS Safety Report 15814865 (Version 2)
Quarter: 2019Q1

REPORT INFORMATION
  Report Type: Report from Study
  Country: DE (occurrence: DE)
  Receive Date: 20190111
  Receipt Date: 20190214
  Transmission Date: 20190417
  Serious: Yes (Death, Hospitalization)
  Sender: FDA-Public Use
  Company Number: DE-ACCORD-101670

PATIENT
  Age: 75 Year
  Sex: Female
  Weight: 70 kg

DRUGS (17)
  1. MUCOFALK [Concomitant]
     Active Substance: HERBALS\PLANTAGO OVATA LEAF
     Indication: DIVERTICULUM INTESTINAL
     Route: 065
  2. ASPIRIN. [Concomitant]
     Active Substance: ASPIRIN
     Dosage: 100 MG ONCE DAILY
     Route: 048
  3. SAROTEN [Concomitant]
     Active Substance: AMITRIPTYLINE
     Indication: DEPRESSION
     Dosage: DAILY DOSE: 5 MG MILLGRAM(S) EVERY DAYS
     Route: 048
  4. MEROPENEM. [Concomitant]
     Active Substance: MEROPENEM
     Indication: PNEUMONITIS
     Route: 065
  5. IRINOTECAN [Suspect]
     Active Substance: IRINOTECAN
     Indication: COLORECTAL CANCER METASTATIC
     Dosage: DATE OF MOST RECENT DOSE: 15/JAN/2013 (180 MG/KG)
     Route: 042
     Dates: start: 20121211
  6. METOCLOPRAMIDE. [Concomitant]
     Active Substance: METOCLOPRAMIDE
     Indication: NAUSEA
     Route: 042
  7. HUMALOG MIX [Concomitant]
     Active Substance: INSULIN LISPRO
     Indication: DIABETES MELLITUS
     Dosage: DAILY DOSE: 8 IU INTERNATIONAL UNIT(S) EVERY DAYS
     Route: 058
  8. LOPERAMIDE [Concomitant]
     Active Substance: LOPERAMIDE
     Indication: DIARRHOEA
     Route: 065
     Dates: start: 20130117, end: 20130121
  9. AVASTIN [Suspect]
     Active Substance: BEVACIZUMAB
     Indication: COLORECTAL CANCER METASTATIC
     Dosage: DATE OF MOST RECENT DOSE: 15/JAN/2013 (350 MG)
     Route: 042
     Dates: start: 20121211
  10. BISOPROLOL [Concomitant]
     Active Substance: BISOPROLOL
     Indication: HYPERTENSION
     Dosage: DAILY DOSE: 2.5 MG MILLGRAM(S) EVERY DAYS
     Route: 048
  11. FLUOROURACIL. [Suspect]
     Active Substance: FLUOROURACIL
     Indication: COLORECTAL CANCER METASTATIC
     Dosage: DATE OF MOST RECENT DOSE: 15/JAN/2013
     Route: 041
     Dates: start: 20121211
  12. GLIBENCLAMIDE [Concomitant]
     Active Substance: GLYBURIDE
     Indication: DIABETES MELLITUS
     Dosage: DAILY DOSE: 10.5 MG MILLGRAM(S) EVERY DAYS
     Route: 048
  13. AMLODIPINE [Concomitant]
     Active Substance: AMLODIPINE BESYLATE
     Indication: HYPERTENSION
     Dosage: DAILY DOSE: 10 MG MILLGRAM(S) EVERY DAYS
     Route: 048
  14. DICLOFENAC [Concomitant]
     Active Substance: DICLOFENAC
     Indication: HEPATIC PAIN
     Route: 065
  15. FOLINIC ACID [Suspect]
     Active Substance: LEUCOVORIN
     Indication: COLORECTAL CANCER METASTATIC
     Dosage: DATE OF MOST RECENT DOSE: 15/JAN/2013 (400 MG/M2)
     Route: 042
     Dates: start: 20121211
  16. CEFUROXIME. [Concomitant]
     Active Substance: CEFUROXIME
     Indication: DIVERTICULUM INTESTINAL
     Route: 065
  17. METRONIDAZOLE. [Concomitant]
     Active Substance: METRONIDAZOLE
     Indication: DIVERTICULUM INTESTINAL
     Route: 065

REACTIONS (11)
  - Oedema peripheral [Recovered/Resolved]
  - C-reactive protein increased [Recovered/Resolved]
  - Anaemia of malignant disease [Recovered/Resolved]
  - Tachycardia [Recovered/Resolved]
  - Depression [Recovered/Resolved]
  - Hyperventilation [Recovered/Resolved]
  - Pyrexia [Recovered/Resolved]
  - Hepatic pain [Recovered/Resolved]
  - Death [Fatal]
  - Diverticulitis [Recovered/Resolved]
  - Pneumonia [Recovered/Resolved with Sequelae]

NARRATIVE: CASE EVENT DATE: 20121231
